FAERS Safety Report 21995317 (Version 1)
Quarter: 2023Q1

REPORT INFORMATION
  Report Type: Spontaneous
  Country: US (occurrence: None)
  Receive Date: 20230214
  Receipt Date: 20230214
  Transmission Date: 20230418
  Serious: Yes (Other)
  Sender: FDA-Public Use
  Company Number: None

PATIENT
  Age: 55 Year
  Sex: Female
  Weight: 116.55 kg

DRUGS (6)
  1. MOUNJARO [Suspect]
     Active Substance: TIRZEPATIDE
     Indication: Weight decreased
     Dates: start: 20220901, end: 20230101
  2. NALTREXONE [Concomitant]
  3. Mounjaro [Concomitant]
  4. B12MIC [Concomitant]
  5. TRAZODONE [Concomitant]
     Active Substance: TRAZODONE HYDROCHLORIDE
  6. VITAMINS [Concomitant]
     Active Substance: VITAMINS

REACTIONS (4)
  - Abdominal pain upper [None]
  - Gastritis [None]
  - Anxiety [None]
  - Inability to afford medication [None]

NARRATIVE: CASE EVENT DATE: 20230101
